FAERS Safety Report 9122771 (Version 1)
Quarter: 2013Q1

REPORT INFORMATION
  Report Type: Spontaneous
  Country: US (occurrence: None)
  Receive Date: 20130225
  Receipt Date: 20130225
  Transmission Date: 20140127
  Serious: Yes (Other)
  Sender: FDA-Public Use
  Company Number: None

PATIENT
  Age: 55 Year
  Sex: Female
  Weight: 54.43 kg

DRUGS (1)
  1. CLINDAMYCIN [Suspect]
     Indication: VAGINITIS BACTERIAL
     Dosage: 300 MG  3X/DAY  PO
     Route: 048

REACTIONS (1)
  - Clostridium difficile colitis [None]
